FAERS Safety Report 6882029-7 (Version None)
Quarter: 2010Q3

REPORT INFORMATION
  Report Type: 
  Country: None (occurrence: None)
  Receive Date: 20100729
  Receipt Date: 20100709
  Transmission Date: 20110219
  Serious: No
  Sender: FDA-Public Use
  Company Number: US-B.I. PHARMACEUTICALS,INC./RIDGEFIELD-2010-BP-06741BP

PATIENT
  Sex: Female

DRUGS (8)
  1. SPIRIVA [Suspect]
     Indication: CHRONIC OBSTRUCTIVE PULMONARY DISEASE
     Dosage: 18 MCG
     Route: 055
     Dates: start: 20060101
  2. SPIRIVA [Suspect]
     Indication: DYSPNOEA
  3. LISINOPRIL [Concomitant]
     Indication: HYPERTENSION
  4. WARFARIN SODIUM [Concomitant]
  5. OMEPRAZOLE [Concomitant]
  6. LEVOXYL [Concomitant]
  7. METOPROLOL TARTRATE [Concomitant]
     Dosage: 50 MG
  8. MULTIVITAMIN [Concomitant]

REACTIONS (1)
  - DRUG INEFFECTIVE [None]
